FAERS Safety Report 15717260 (Version 1)
Quarter: 2018Q4

REPORT INFORMATION
  Report Type: Spontaneous
  Country: US (occurrence: US)
  Receive Date: 20181213
  Receipt Date: 20181213
  Transmission Date: 20190205
  Serious: No
  Sender: FDA-Public Use
  Company Number: US-BIO PRODUCTS LABORATORY LTD-2060121

PATIENT
  Age: 63 Year
  Sex: Male

DRUGS (1)
  1. GAMMAPLEX [Suspect]
     Active Substance: HUMAN IMMUNOGLOBULIN G
     Indication: POLYNEUROPATHY
     Route: 042
     Dates: start: 20180813, end: 20180817

REACTIONS (2)
  - Rash pruritic [Recovered/Resolved]
  - Off label use [Recovered/Resolved]
